FAERS Safety Report 8592402-7 (Version None)
Quarter: 2012Q3

REPORT INFORMATION
  Report Type: 
  Country: None (occurrence: None)
  Receive Date: 20120814
  Receipt Date: 20120806
  Transmission Date: 20120928
  Serious: No
  Sender: FDA-Public Use
  Company Number: US-BAYER-2012-080913

PATIENT
  Age: 54 Year
  Sex: Male
  Weight: 140.59 kg

DRUGS (4)
  1. CITALOPRAM [Concomitant]
  2. BUPROPION HYDROCHLORIDE [Concomitant]
  3. ASCORBIC ACID [Concomitant]
  4. ALEVE (CAPLET) [Suspect]
     Indication: ANALGESIC THERAPY
     Dosage: 1 DF, BID
     Route: 048
     Dates: start: 20070101

REACTIONS (2)
  - SKIN DISCOLOURATION [None]
  - OEDEMA PERIPHERAL [None]
